FAERS Safety Report 13424759 (Version 3)
Quarter: 2017Q2

REPORT INFORMATION
  Report Type: Spontaneous
  Country: US (occurrence: JP)
  Receive Date: 20170410
  Receipt Date: 20170502
  Transmission Date: 20170830
  Serious: Yes (Death)
  Sender: FDA-Public Use
  Company Number: US-SUNOVION-2017SUN001461

PATIENT
  Age: 91 Year
  Sex: Male

DRUGS (19)
  1. LYRICA [Concomitant]
     Active Substance: PREGABALIN
     Dosage: UNK
  2. SPELEAR [Concomitant]
     Active Substance: FUDOSTEINE
  3. SERMION [Concomitant]
     Active Substance: NICERGOLINE
  4. RISUMIC [Concomitant]
     Active Substance: AMEZINIUM METILSULFATE
  5. YAKUBAN [Concomitant]
     Active Substance: FLURBIPROFEN
  6. TULOBUTEROL [Concomitant]
     Active Substance: TULOBUTEROL
     Dosage: UNK
  7. XARELTO [Concomitant]
     Active Substance: RIVAROXABAN
     Dosage: UNK
  8. LUNESTA [Concomitant]
     Active Substance: ESZOPICLONE
  9. MAGNESIUM [Concomitant]
     Active Substance: MAGNESIUM
  10. MERISLON [Concomitant]
     Active Substance: BETAHISTINE MESILATE
  11. AMBROXOL HYDROCHLORIDE [Concomitant]
     Active Substance: AMBROXOL HYDROCHLORIDE
  12. DAIKENCHUTO [Concomitant]
     Active Substance: HERBALS
  13. VESICARE [Concomitant]
     Active Substance: SOLIFENACIN SUCCINATE
  14. PITAVASTATIN. [Concomitant]
     Active Substance: PITAVASTATIN CALCIUM
  15. FERROMIA [Concomitant]
     Active Substance: FERROUS CITRATE
  16. INDACATEROL AND GLYCOPYRROLATE [Suspect]
     Active Substance: GLYCOPYRROLATE\INDACATEROL MALEATE
     Indication: CHRONIC OBSTRUCTIVE PULMONARY DISEASE
     Dosage: 1 DF (INDACATEROL 110 UG, GLYCOPYRRONIUM BROMIDE 50 UG), UNK
     Route: 055
  17. LANSOPRAZOLE. [Concomitant]
     Active Substance: LANSOPRAZOLE
  18. EDIROL [Concomitant]
     Active Substance: ELDECALCITOL
  19. LIMAPROST [Concomitant]
     Active Substance: LIMAPROST

REACTIONS (5)
  - Bronchitis [Unknown]
  - Pyrexia [Unknown]
  - Upper respiratory tract inflammation [Unknown]
  - Death [Fatal]
  - Dyspnoea [Unknown]

NARRATIVE: CASE EVENT DATE: 201702
